FAERS Safety Report 5192777-5 (Version None)
Quarter: 2006Q4

REPORT INFORMATION
  Report Type: 
  Country: None (occurrence: None)
  Receive Date: 20061221
  Receipt Date: 20061218
  Transmission Date: 20070319
  Serious: Yes (Hospitalization)
  Sender: FDA-Public Use
  Company Number: S06-USA-05312-01

PATIENT
  Sex: Female

DRUGS (3)
  1. LEXAPRO [Suspect]
  2. LUNESTA [Suspect]
     Dosage: 54 MG ONCE PO
     Route: 048
  3. WELLBUTRIN [Suspect]

REACTIONS (4)
  - COMA [None]
  - HYPERTENSION [None]
  - OVERDOSE [None]
  - SUICIDE ATTEMPT [None]
